FAERS Safety Report 5284650-9 (Version None)
Quarter: 2007Q1

REPORT INFORMATION
  Report Type: 
  Country: None (occurrence: None)
  Receive Date: 20061229
  Receipt Date: 20051201
  Transmission Date: 20070707
  Serious: Yes (Hospitalization)
  Sender: FDA-Public Use
  Company Number: PHEH2005US13135

PATIENT
  Age: 53 Year
  Sex: Female

DRUGS (8)
  1. CLOZARIL [Suspect]
     Indication: SCHIZOAFFECTIVE DISORDER
     Dosage: 100MG AM+200MG PM, ORAL
     Route: 048
  2. ZOLOFT [Concomitant]
  3. DEPAKOTE [Concomitant]
  4. SEROQUEL [Concomitant]
  5. VYTORIN [Concomitant]
  6. DILANTIN /AUS/ (PHENYTOIN SODIUM) [Concomitant]
  7. COUMADIN [Concomitant]
  8. TROPROL XL (METOPROLOL SUCCINATE) [Concomitant]

REACTIONS (1)
  - DYSKINESIA [None]
